FAERS Safety Report 4830066-6 (Version None)
Quarter: 2005Q4

REPORT INFORMATION
  Report Type: 
  Country: None (occurrence: None)
  Receive Date: 20051117
  Receipt Date: 20051107
  Transmission Date: 20060501
  Serious: Yes (Other)
  Sender: FDA-Public Use
  Company Number: US-JNJFOC-20051001234

PATIENT
  Sex: Female
  Weight: 69.4 kg

DRUGS (7)
  1. INFLIXIMAB [Suspect]
     Dosage: 14 TH DOSE
     Route: 042
  2. INFLIXIMAB [Suspect]
     Route: 042
  3. METHOTREXATE [Concomitant]
  4. FOLIC ACID [Concomitant]
  5. IBUPROFEN [Concomitant]
  6. ORTHO NOVUM 2/50 21 TAB [Concomitant]
  7. ORTHO NOVUM 2/50 21 TAB [Concomitant]

REACTIONS (2)
  - DIFFUSE LARGE B-CELL LYMPHOMA [None]
  - GROIN PAIN [None]
